FAERS Safety Report 20973452 (Version 2)
Quarter: 2022Q3

REPORT INFORMATION
  Report Type: Spontaneous
  Country: US (occurrence: None)
  Receive Date: 20220617
  Receipt Date: 20220804
  Transmission Date: 20221027
  Serious: No
  Sender: FDA-Public Use
  Company Number: 2022A220855

PATIENT
  Sex: Male
  Weight: 62.6 kg

DRUGS (1)
  1. BUDESONIDE\FORMOTEROL\GLYCOPYRRONIUM [Suspect]
     Active Substance: BUDESONIDE\FORMOTEROL\GLYCOPYRRONIUM
     Indication: Emphysema
     Dosage: 2 PUFFS TWICE DAILY (2 PUFFS IN THE MORNING AND 2 PUFFS AT NIGHT), TWO TIMES A DAY
     Route: 055

REACTIONS (4)
  - Visual impairment [Unknown]
  - Device use issue [Unknown]
  - Product dose omission issue [Unknown]
  - Drug delivery system issue [Unknown]
